FAERS Safety Report 6164077-8 (Version None)
Quarter: 2009Q2

REPORT INFORMATION
  Report Type: 
  Country: None (occurrence: None)
  Receive Date: 20090422
  Receipt Date: 20090415
  Transmission Date: 20091009
  Serious: Yes (Life-Threatening, Hospitalization)
  Sender: FDA-Public Use
  Company Number: A0772625A

PATIENT
  Sex: Male
  Weight: 70 kg

DRUGS (1)
  1. DEXEDRINE [Suspect]
     Indication: NARCOLEPSY
     Dosage: 15MG PER DAY
     Route: 048
     Dates: end: 20090325

REACTIONS (8)
  - ATRIAL FIBRILLATION [None]
  - BLOOD PRESSURE ABNORMAL [None]
  - BLOOD PRESSURE INCREASED [None]
  - FALL [None]
  - HAEMORRHAGIC STROKE [None]
  - HEART RATE INCREASED [None]
  - HEART RATE IRREGULAR [None]
  - SUBDURAL HAEMATOMA [None]
